FAERS Safety Report 24261434 (Version 1)
Quarter: 2024Q3

REPORT INFORMATION
  Report Type: Spontaneous
  Country: US (occurrence: US)
  Receive Date: 20240829
  Receipt Date: 20240829
  Transmission Date: 20241016
  Serious: Yes (Other)
  Sender: GE HEALTHCARE
  Company Number: US-GE HEALTHCARE-2024CSU009617

PATIENT
  Age: 25 Year
  Sex: Female

DRUGS (1)
  1. OMNIPAQUE [Suspect]
     Active Substance: IOHEXOL
     Indication: Computerised tomogram abdomen
     Dosage: 100 ML, TOTAL
     Route: 042
     Dates: start: 20240821, end: 20240821

REACTIONS (1)
  - Urticaria [Recovered/Resolved]

NARRATIVE: CASE EVENT DATE: 20240821
